FAERS Safety Report 17495237 (Version 1)
Quarter: 2020Q1

REPORT INFORMATION
  Report Type: Spontaneous
  Country: DK (occurrence: DK)
  Receive Date: 20200303
  Receipt Date: 20200303
  Transmission Date: 20200409
  Serious: Yes (Life-Threatening)
  Sender: FDA-Public Use
  Company Number: DK-JNJFOC-20200239197

PATIENT
  Age: 69 Year
  Sex: Female

DRUGS (11)
  1. PANODIL [Concomitant]
     Active Substance: ACETAMINOPHEN
     Indication: PAIN
     Dosage: STYRKE: 500 MG, DOSIS: 2 TABLETTER EFTER BEHOV H JST 4 GANGE DAGLIGT
     Route: 048
  2. LAXOBERAL [Concomitant]
     Active Substance: SODIUM PICOSULFATE
     Indication: CONSTIPATION
     Dosage: STYRKE: 7.5 MG/ML, DOSIS: 5-10 DR BER DAGLIGT
     Route: 048
     Dates: start: 20200117
  3. PANTOPRAZOLE SODIUM SESQUIHYDRATE [Concomitant]
     Active Substance: PANTOPRAZOLE SODIUM
     Indication: PROPHYLAXIS AGAINST GASTROINTESTINAL ULCER
     Dosage: STYRKE: 40 MG
     Route: 048
     Dates: start: 20191228
  4. ONDANSETRON STADA [Concomitant]
     Indication: NAUSEA
     Dosage: STYRKE: 4 MG, DOSIS: 2 TABLETTER EFTER BEHOV H JST 2 GANGE DAGLIG
     Route: 048
     Dates: start: 20191219
  5. NOVORAPID [Concomitant]
     Active Substance: INSULIN ASPART
     Indication: DIABETES MELLITUS
     Dosage: STYRKE: 100 E/ML, DOSIS: 4 ENHEDER EFTER BEHOV H JST 6 GANGE DAGLIG
     Dates: start: 20200114
  6. DIGOXIN. [Concomitant]
     Active Substance: DIGOXIN
     Indication: ARRHYTHMIA
     Dosage: STYRKE: 250  G
     Route: 048
     Dates: start: 20191223
  7. RIVAROXABAN [Suspect]
     Active Substance: RIVAROXABAN
     Indication: ATRIAL FIBRILLATION
     Dosage: STYRKE: 20 MG
     Route: 048
     Dates: start: 20190116, end: 20200206
  8. TRESIBA [Concomitant]
     Active Substance: INSULIN DEGLUDEC
     Indication: DIABETES MELLITUS
     Dosage: STYRKE: 100 E/ML
     Dates: start: 20200107
  9. MACROGOL 3350;POTASSIUM;SODIUM CHLORIDE;SODIU [Concomitant]
     Indication: CONSTIPATION
     Route: 048
     Dates: start: 20200123
  10. OXAPAX [Concomitant]
     Active Substance: OXAZEPAM
     Indication: SEDATIVE THERAPY
     Dosage: STYRKE: 15 MG, DOSIS: 1/2 TABLET 1-2 GANGE DAGLIGT
     Route: 048
     Dates: start: 20200116
  11. CETIRIZINE [Concomitant]
     Active Substance: CETIRIZINE HYDROCHLORIDE
     Dosage: STYRKE: 10 MG
     Route: 048
     Dates: start: 20191221

REACTIONS (2)
  - Cerebral haemorrhage [Not Recovered/Not Resolved]
  - Muscular weakness [Unknown]

NARRATIVE: CASE EVENT DATE: 202001
